FAERS Safety Report 4705547-6 (Version None)
Quarter: 2005Q2

REPORT INFORMATION
  Report Type: 
  Country: None (occurrence: None)
  Receive Date: 20050208
  Receipt Date: 20050208
  Transmission Date: 20051028
  Serious: Yes (Other)
  Sender: FDA-Public Use
  Company Number: None

PATIENT
  Sex: Male

DRUGS (4)
  1. CARBAMAZEPINE [Suspect]
     Indication: CONVULSION
     Dosage: 200MG 2 BID
  2. PHENYTOIN [Suspect]
     Indication: CONVULSION
     Dosage: 100 MG 4/DAY
  3. PRIMIDONE [Suspect]
     Indication: CONVULSION
  4. AMITRIPTYLINE HCL [Concomitant]

REACTIONS (1)
  - CONVULSION [None]
